FAERS Safety Report 9484491 (Version 1)
Quarter: 2013Q3

REPORT INFORMATION
  Report Type: Report from Study
  Country: US (occurrence: US)
  Receive Date: 20130828
  Receipt Date: 20130828
  Transmission Date: 20140515
  Serious: No
  Sender: FDA-Public Use
  Company Number: US-ABBOTT-13P-163-1092117-00

PATIENT
  Sex: Male
  Weight: 96.25 kg

DRUGS (2)
  1. ANDROGEL [Suspect]
     Indication: BLOOD TESTOSTERONE DECREASED
     Dates: start: 201302, end: 201304
  2. ANDROGEL [Suspect]
     Dates: start: 201304

REACTIONS (1)
  - Incorrect dose administered [Unknown]
